FAERS Safety Report 16002144 (Version 2)
Quarter: 2020Q2

REPORT INFORMATION
  Report Type: Spontaneous
  Country: DE (occurrence: DE)
  Receive Date: 20190225
  Receipt Date: 20200414
  Transmission Date: 20200713
  Serious: Yes (Hospitalization, Other)
  Sender: FDA-Public Use
  Company Number: DE-009507513-1902DEU006837

PATIENT
  Age: 76 Year
  Sex: Male

DRUGS (4)
  1. JANUMET [Suspect]
     Active Substance: METFORMIN HYDROCHLORIDE\SITAGLIPTIN PHOSPHATE
     Dosage: 1-0-1
     Route: 048
     Dates: start: 20150724, end: 2018
  2. JANUVIA [Suspect]
     Active Substance: SITAGLIPTIN PHOSPHATE
     Dosage: UNK
     Route: 048
     Dates: start: 2015
  3. JANUVIA [Suspect]
     Active Substance: SITAGLIPTIN PHOSPHATE
     Dosage: UNK
     Route: 048
     Dates: start: 2015
  4. JANUMET [Suspect]
     Active Substance: METFORMIN HYDROCHLORIDE\SITAGLIPTIN PHOSPHATE
     Indication: DIABETES MELLITUS
     Dosage: 1-0-1
     Route: 048
     Dates: start: 2009, end: 2015

REACTIONS (15)
  - Loss of consciousness [Unknown]
  - Blood creatinine abnormal [Unknown]
  - Hip surgery [Recovered/Resolved]
  - Osteoarthritis [Unknown]
  - Product administration error [Unknown]
  - Post procedural haemorrhage [Recovered/Resolved]
  - Circulatory collapse [Recovered/Resolved]
  - Articular calcification [Unknown]
  - Nephropathy [Unknown]
  - Blood loss anaemia [Recovered/Resolved]
  - Dementia [Recovering/Resolving]
  - Depressed level of consciousness [Unknown]
  - Blood urea abnormal [Unknown]
  - Nervous system disorder [Not Recovered/Not Resolved]
  - Malaise [Unknown]

NARRATIVE: CASE EVENT DATE: 2015
